FAERS Safety Report 25168158 (Version 3)
Quarter: 2025Q3

REPORT INFORMATION
  Report Type: Spontaneous
  Country: US (occurrence: US)
  Receive Date: 20250407
  Receipt Date: 20250821
  Transmission Date: 20251021
  Serious: Yes (Hospitalization)
  Sender: TEVA
  Company Number: US-TEVA-VS-3317419

PATIENT
  Age: 72 Year
  Sex: Male

DRUGS (1)
  1. IMATINIB [Suspect]
     Active Substance: IMATINIB
     Indication: Chronic myeloid leukaemia
     Route: 065
     Dates: start: 2017

REACTIONS (4)
  - Pericardial effusion [Recovered/Resolved]
  - Serositis [Unknown]
  - Pleural effusion [Recovered/Resolved]
  - Cardiac electrophysiologic study abnormal [Unknown]
